FAERS Safety Report 20762360 (Version 2)
Quarter: 2022Q2

REPORT INFORMATION
  Report Type: Spontaneous
  Country: JP (occurrence: JP)
  Receive Date: 20220428
  Receipt Date: 20220630
  Transmission Date: 20220721
  Serious: Yes (Other)
  Sender: FDA-Public Use
  Company Number: JP-ASTELLAS-2022JP006122

PATIENT
  Age: 63 Year
  Sex: Male

DRUGS (3)
  1. PADCEV [Suspect]
     Active Substance: ENFORTUMAB VEDOTIN-EJFV
     Indication: Transitional cell carcinoma
     Dosage: 1.25 MG/KG, ONCE A WEEK X 3 TIMES AND INTERRUPTED IN THE 4TH WEEK
     Route: 041
     Dates: start: 20220111, end: 20220201
  2. PADCEV [Suspect]
     Active Substance: ENFORTUMAB VEDOTIN-EJFV
     Dosage: 1.25 MG/KG, ONCE A WEEK X 3 TIMES AND INTERRUPTED IN THE 4TH WEEK
     Route: 041
     Dates: start: 20220407
  3. PADCEV [Suspect]
     Active Substance: ENFORTUMAB VEDOTIN-EJFV
     Dosage: 1.25 MG/KG, ONCE A WEEK X 3 TIMES AND INTERRUPTED IN THE 4TH WEEK
     Route: 041
     Dates: start: 20220616

REACTIONS (4)
  - Rash [Recovered/Resolved]
  - Pruritus [Recovered/Resolved]
  - Ileus [Recovered/Resolved]
  - Hepatic function abnormal [Recovered/Resolved]

NARRATIVE: CASE EVENT DATE: 20220101
